FAERS Safety Report 4673447-6 (Version None)
Quarter: 2005Q2

REPORT INFORMATION
  Report Type: 
  Country: None (occurrence: None)
  Receive Date: 20050525
  Receipt Date: 20050121
  Transmission Date: 20051028
  Serious: Yes (Other)
  Sender: FDA-Public Use
  Company Number: CH-GLAXOSMITHKLINE-B0365899A

PATIENT
  Age: 61 Year
  Sex: Male

DRUGS (6)
  1. LAMICTAL [Suspect]
     Indication: DRUG USE FOR UNKNOWN INDICATION
     Route: 048
     Dates: start: 20040910, end: 20041006
  2. SEROQUEL [Concomitant]
     Indication: DRUG USE FOR UNKNOWN INDICATION
     Route: 048
     Dates: start: 20040910, end: 20041003
  3. MODURETIC 5-50 [Concomitant]
     Indication: ILL-DEFINED DISORDER
     Dosage: 50MG PER DAY
     Route: 048
  4. PANTOPRAZOLE [Concomitant]
     Indication: ILL-DEFINED DISORDER
     Route: 048
  5. OLANZAPINE [Concomitant]
     Indication: ILL-DEFINED DISORDER
     Route: 048
     Dates: start: 20041004, end: 20041009
  6. DIAZEPAM [Concomitant]
     Indication: DRUG USE FOR UNKNOWN INDICATION
     Dosage: 5MG PER DAY
     Route: 048
     Dates: start: 20040910, end: 20041123

REACTIONS (7)
  - BIPOLAR DISORDER [None]
  - CONDITION AGGRAVATED [None]
  - DIZZINESS POSTURAL [None]
  - DRY MOUTH [None]
  - MANIA [None]
  - NAUSEA [None]
  - VOMITING [None]
